FAERS Safety Report 18377147 (Version 1)
Quarter: 2020Q4

REPORT INFORMATION
  Report Type: Spontaneous
  Country: FR (occurrence: FR)
  Receive Date: 20201013
  Receipt Date: 20201013
  Transmission Date: 20210114
  Serious: Yes (Hospitalization)
  Sender: FDA-Public Use
  Company Number: FR-JNJFOC-20201008114

PATIENT
  Age: 35 Year
  Sex: Male
  Weight: 60 kg

DRUGS (3)
  1. ZEBINIX [Suspect]
     Active Substance: ESLICARBAZEPINE ACETATE
     Indication: SEIZURE PROPHYLAXIS
     Dosage: UNK
     Route: 048
     Dates: start: 20200819, end: 20200914
  2. TRAMADOL HYDROCHLORIDE. [Suspect]
     Active Substance: TRAMADOL HYDROCHLORIDE
     Indication: PAIN
     Dosage: 50 MILLIGRAM, 1/DAY
     Route: 048
     Dates: start: 20200822, end: 20200826
  3. PHENYTOIN SODIUM. [Suspect]
     Active Substance: PHENYTOIN SODIUM
     Indication: SEIZURE PROPHYLAXIS
     Dosage: UNK
     Route: 048
     Dates: start: 20200819, end: 20200901

REACTIONS (1)
  - Drug reaction with eosinophilia and systemic symptoms [Recovering/Resolving]

NARRATIVE: CASE EVENT DATE: 20200911
